FAERS Safety Report 7819597-4 (Version None)
Quarter: 2011Q4

REPORT INFORMATION
  Report Type: 
  Country: None (occurrence: None)
  Receive Date: 20111018
  Receipt Date: 20111018
  Transmission Date: 20120403
  Serious: No
  Sender: FDA-Public Use
  Company Number: None

PATIENT
  Age: 75 Year
  Sex: Female
  Weight: 81.646 kg

DRUGS (2)
  1. LYRICA [Suspect]
     Indication: NERVE ROOT COMPRESSION
     Dosage: 100MG
     Route: 048
     Dates: start: 20110421, end: 20110701
  2. LYRICA [Suspect]
     Indication: NEURALGIA
     Dosage: 100MG
     Route: 048
     Dates: start: 20110421, end: 20110701

REACTIONS (4)
  - ALOPECIA [None]
  - VISION BLURRED [None]
  - SKIN LESION [None]
  - HAEMORRHAGE [None]
